FAERS Safety Report 10128391 (Version 1)
Quarter: 2014Q2

REPORT INFORMATION
  Report Type: Spontaneous
  Country: US (occurrence: US)
  Receive Date: 20140428
  Receipt Date: 20140428
  Transmission Date: 20141212
  Serious: No
  Sender: FDA-Public Use
  Company Number: US-BIOGENIDEC-2014BI037190

PATIENT
  Age: 38 Year
  Sex: Female

DRUGS (10)
  1. TECFIDERA [Suspect]
     Indication: MULTIPLE SCLEROSIS
     Route: 048
     Dates: start: 20140324
  2. TECFIDERA [Suspect]
     Indication: MULTIPLE SCLEROSIS
     Route: 048
     Dates: start: 20140331
  3. ALBUTEROL [Concomitant]
  4. ZOLPIDERM [Concomitant]
  5. SINGULAR [Concomitant]
  6. CETIRIZINE HCL [Concomitant]
  7. PAROXETINE [Concomitant]
  8. GALANTAMINE [Concomitant]
  9. CHANTIX [Concomitant]
  10. BUSPIRONE [Concomitant]

REACTIONS (6)
  - Pain in extremity [Not Recovered/Not Resolved]
  - Peripheral swelling [Not Recovered/Not Resolved]
  - Diarrhoea [Not Recovered/Not Resolved]
  - Flushing [Not Recovered/Not Resolved]
  - Rash [Not Recovered/Not Resolved]
  - Pruritus [Not Recovered/Not Resolved]
